FAERS Safety Report 13898984 (Version 1)
Quarter: 2017Q3

REPORT INFORMATION
  Report Type: Spontaneous
  Country: US (occurrence: US)
  Receive Date: 20170823
  Receipt Date: 20170823
  Transmission Date: 20171127
  Serious: No
  Sender: FDA-Public Use
  Company Number: US-JAZZ-2017-US-007427

PATIENT
  Age: 56 Year
  Sex: Female

DRUGS (1)
  1. XYREM [Suspect]
     Active Substance: SODIUM OXYBATE
     Indication: PRODUCT USED FOR UNKNOWN INDICATION
     Route: 048

REACTIONS (6)
  - Somnolence [Recovered/Resolved]
  - Agitation [Recovered/Resolved]
  - Intentional product use issue [Unknown]
  - Conduction disorder [Recovered/Resolved]
  - Lethargy [Recovered/Resolved]
  - Irritability [Recovered/Resolved]
